FAERS Safety Report 19017887 (Version 4)
Quarter: 2021Q2

REPORT INFORMATION
  Report Type: Report from Study
  Country: MY (occurrence: MY)
  Receive Date: 20210317
  Receipt Date: 20210507
  Transmission Date: 20210717
  Serious: Yes (Death, Life-Threatening, Other)
  Sender: FDA-Public Use
  Company Number: NVSC2021MY055867

PATIENT
  Age: 37 Year
  Sex: Male
  Weight: 72 kg

DRUGS (9)
  1. ACICLOVIR [Concomitant]
     Active Substance: ACYCLOVIR
     Indication: ANTIVIRAL PROPHYLAXIS
     Dosage: 400 MG, BID
     Route: 065
     Dates: start: 20210301, end: 20210303
  2. BACTRIM [Concomitant]
     Active Substance: SULFAMETHOXAZOLE\TRIMETHOPRIM
     Indication: ANTIBIOTIC PROPHYLAXIS
     Dosage: 1/1 OD 3X /WEEK
     Route: 065
     Dates: start: 20210301, end: 20210303
  3. NELARABINE [Suspect]
     Active Substance: NELARABINE
     Indication: PRECURSOR T-LYMPHOBLASTIC LYMPHOMA/LEUKAEMIA REFRACTORY
     Dosage: 1500 MG/M2
     Route: 042
     Dates: start: 20210301, end: 20210303
  4. ALLOPURINOL. [Concomitant]
     Active Substance: ALLOPURINOL
     Dosage: 300 MG, QD
     Route: 065
     Dates: start: 20210315
  5. BACTRIM [Concomitant]
     Active Substance: SULFAMETHOXAZOLE\TRIMETHOPRIM
     Dosage: 1/1 OD 3X /WEEK
     Route: 065
     Dates: start: 20210315
  6. ALLOPURINOL. [Concomitant]
     Active Substance: ALLOPURINOL
     Indication: PROPHYLAXIS
     Dosage: 300 MG, QD
     Route: 065
     Dates: start: 20210301, end: 20210303
  7. ACICLOVIR [Concomitant]
     Active Substance: ACYCLOVIR
     Dosage: 400 MG, BID
     Route: 065
     Dates: start: 20210315
  8. NELARABINE [Suspect]
     Active Substance: NELARABINE
     Dosage: 1500 MG/M2
     Route: 042
     Dates: start: 20210303, end: 20210416
  9. PANTOPRAZOLE [Concomitant]
     Active Substance: PANTOPRAZOLE
     Indication: PRODUCT USED FOR UNKNOWN INDICATION
     Dosage: 40 MG, QD
     Route: 065
     Dates: start: 20210315

REACTIONS (6)
  - Malignant neoplasm progression [Fatal]
  - Precursor T-lymphoblastic lymphoma/leukaemia refractory [Fatal]
  - Infection [Unknown]
  - Dyspnoea [Fatal]
  - Respiratory distress [Recovered/Resolved]
  - Mediastinal mass [Unknown]

NARRATIVE: CASE EVENT DATE: 20210303
